FAERS Safety Report 10165496 (Version 1)
Quarter: 2014Q2

REPORT INFORMATION
  Report Type: Spontaneous
  Country: US (occurrence: US)
  Receive Date: 20140510
  Receipt Date: 20140510
  Transmission Date: 20141212
  Serious: No
  Sender: FDA-Public Use
  Company Number: US-BRISTOL-MYERS SQUIBB COMPANY-20541371

PATIENT
  Age: 84 Year
  Sex: Female
  Weight: 71.65 kg

DRUGS (3)
  1. BYDUREON [Suspect]
     Indication: TYPE 2 DIABETES MELLITUS
  2. METFORMIN HCL [Concomitant]
     Dosage: 500MG-MNG,1000MG-NIGHT
     Route: 048
  3. CARVEDILOL [Concomitant]
     Route: 048

REACTIONS (2)
  - Weight decreased [Unknown]
  - Drug dose omission [Unknown]
